FAERS Safety Report 8520382-9 (Version None)
Quarter: 2012Q3

REPORT INFORMATION
  Report Type: 
  Country: None (occurrence: None)
  Receive Date: 20120712
  Receipt Date: 20120712
  Transmission Date: 20120928
  Serious: Yes (Other)
  Sender: FDA-Public Use
  Company Number: None

PATIENT
  Sex: Male
  Weight: 69.4003 kg

DRUGS (1)
  1. CHANTIX [Suspect]
     Indication: SMOKING CESSATION THERAPY
     Dosage: 2MG DAILY 14 DAYS OPAL
     Route: 047
     Dates: start: 20120605, end: 20120612

REACTIONS (2)
  - AGGRESSION [None]
  - ANGER [None]
